FAERS Safety Report 9361116 (Version 1)
Quarter: 2013Q2

REPORT INFORMATION
  Report Type: Spontaneous
  Country: US (occurrence: None)
  Receive Date: 20130618
  Receipt Date: 20130618
  Transmission Date: 20140414
  Serious: Yes (Other)
  Sender: FDA-Public Use
  Company Number: SYM-2013-04778

PATIENT
  Sex: Female

DRUGS (1)
  1. WELLBUTRIN [Suspect]
     Indication: PRODUCT USED FOR UNKNOWN INDICATION

REACTIONS (3)
  - Small intestine ulcer [None]
  - Anaemia [None]
  - Gastrointestinal erosion [None]
